FAERS Safety Report 7342777-1 (Version None)
Quarter: 2011Q1

REPORT INFORMATION
  Report Type: 
  Country: None (occurrence: None)
  Receive Date: 20110310
  Receipt Date: 20090412
  Transmission Date: 20110831
  Serious: Yes (Hospitalization)
  Sender: FDA-Public Use
  Company Number: US-BAYER-200917872NA

PATIENT
  Sex: Male
  Weight: 8 kg

DRUGS (8)
  1. ALDACTONE [Concomitant]
     Indication: PRODUCT USED FOR UNKNOWN INDICATION
     Dosage: UNK
     Dates: start: 20051218
  2. ZANTAC [Concomitant]
     Indication: GASTROOESOPHAGEAL REFLUX DISEASE
     Dosage: 1 ML, UNK
     Route: 048
     Dates: start: 20050401
  3. TRASYLOL [Suspect]
     Dosage: 12CC/HR
     Dates: start: 20051213
  4. TRASYLOL [Suspect]
     Dosage: 5CC/HR
     Dates: start: 20051213
  5. PROPRANOLOL [Concomitant]
     Indication: CARDIAC FAILURE
     Dosage: 2 ML (40MG/DAY), UNK
     Route: 048
     Dates: start: 20050907, end: 20051213
  6. TRASYLOL [Suspect]
     Dosage: ANESTHESIA NOTES TEST DOSE
     Dates: start: 20051213
  7. TRASYLOL [Suspect]
     Dosage: 50CC/HR
     Dates: start: 20051213
  8. TRASYLOL [Suspect]
     Indication: FALLOT'S TETRALOGY
     Dosage: 100 ML, UNK
     Route: 042
     Dates: start: 20051213, end: 20051213

REACTIONS (10)
  - RENAL IMPAIRMENT [None]
  - MULTI-ORGAN FAILURE [None]
  - RENAL INJURY [None]
  - UNEVALUABLE EVENT [None]
  - ANXIETY [None]
  - FEAR [None]
  - PAIN [None]
  - RENAL FAILURE [None]
  - EMOTIONAL DISTRESS [None]
  - STRESS [None]
